FAERS Safety Report 22753861 (Version 6)
Quarter: 2023Q4

REPORT INFORMATION
  Report Type: Spontaneous
  Country: US (occurrence: US)
  Receive Date: 20230727
  Receipt Date: 20231127
  Transmission Date: 20240110
  Serious: Yes (Other)
  Sender: FDA-Public Use
  Company Number: US-BRISTOL-MYERS SQUIBB COMPANY-2023-103048

PATIENT
  Age: 66 Year
  Sex: Female

DRUGS (1)
  1. LENALIDOMIDE [Suspect]
     Active Substance: LENALIDOMIDE
     Indication: Plasma cell myeloma
     Dosage: TAKE 1 CAPSULE BY MOUTH EVERY DAY ON DAYS 1-21 EVERY 28 DAYS
     Route: 048
     Dates: start: 20221104

REACTIONS (29)
  - Drug ineffective [Not Recovered/Not Resolved]
  - Metastases to bone [Unknown]
  - Plasma cell myeloma recurrent [Not Recovered/Not Resolved]
  - Pain in extremity [Not Recovered/Not Resolved]
  - Dry eye [Not Recovered/Not Resolved]
  - Dysstasia [Unknown]
  - Blood calcium decreased [Unknown]
  - Arthritis [Unknown]
  - Carotid artery thrombosis [Unknown]
  - Contusion [Unknown]
  - Fatigue [Unknown]
  - Peripheral coldness [Unknown]
  - Nasopharyngitis [Unknown]
  - Nausea [Unknown]
  - Body temperature increased [Unknown]
  - Abdominal pain [Unknown]
  - Diarrhoea [Unknown]
  - Diabetes mellitus [Unknown]
  - Chest discomfort [Unknown]
  - Pruritus [Unknown]
  - Pain of skin [Unknown]
  - Muscle tightness [Unknown]
  - Arthritis [Unknown]
  - Dyspepsia [Unknown]
  - Limb discomfort [Not Recovered/Not Resolved]
  - Sinus disorder [Not Recovered/Not Resolved]
  - Auditory disorder [Not Recovered/Not Resolved]
  - Condition aggravated [Not Recovered/Not Resolved]
  - Abdominal pain upper [Not Recovered/Not Resolved]
